FAERS Safety Report 5865312-3 (Version None)
Quarter: 2008Q3

REPORT INFORMATION
  Report Type: 
  Country: None (occurrence: None)
  Receive Date: 20080829
  Receipt Date: 20080825
  Transmission Date: 20090109
  Serious: Yes (Death, Life-Threatening, Hospitalization, Other)
  Sender: FDA-Public Use
  Company Number: US-MERCK-0808USA03128

PATIENT
  Age: 10 Year
  Sex: Male

DRUGS (6)
  1. SINGULAIR [Suspect]
     Indication: ASTHMA
     Route: 048
  2. PULMICORT-100 [Concomitant]
     Dates: start: 20030101
  3. ADVAIR DISKUS 100/50 [Concomitant]
     Dates: start: 20030101
  4. PROVENTIL-HFA [Concomitant]
  5. PRILOSEC [Concomitant]
     Route: 048
     Dates: start: 20011001
  6. ATROVENT [Concomitant]
     Dates: start: 20011001

REACTIONS (2)
  - ASTHMA [None]
  - OVERDOSE [None]
